FAERS Safety Report 24153680 (Version 1)
Quarter: 2024Q3

REPORT INFORMATION
  Report Type: Spontaneous
  Country: US (occurrence: None)
  Receive Date: 20240725
  Receipt Date: 20240725
  Transmission Date: 20241017
  Serious: Yes (Death, Disabling)
  Sender: Public
  Company Number: None

PATIENT
  Age: 45 Year
  Sex: Female

DRUGS (4)
  1. LAMOTRIGINE [Suspect]
     Active Substance: LAMOTRIGINE
  2. LEVETIRACETAM [Suspect]
     Active Substance: LEVETIRACETAM
  3. CALCIUM [Concomitant]
     Active Substance: CALCIUM
  4. ANTI-ACIDS [Concomitant]

REACTIONS (3)
  - Hepatic steatosis [None]
  - Epilepsy [None]
  - Liver injury [None]

NARRATIVE: CASE EVENT DATE: 20240102
